FAERS Safety Report 9351204 (Version 4)
Quarter: 2013Q4

REPORT INFORMATION
  Report Type: Spontaneous
  Country: US (occurrence: US)
  Receive Date: 20130617
  Receipt Date: 20131022
  Transmission Date: 20140711
  Serious: Yes (Death, Other)
  Sender: FDA-Public Use
  Company Number: US-PFIZER INC-2013178508

PATIENT
  Age: 54 Year
  Sex: Male

DRUGS (2)
  1. VFEND [Suspect]
     Indication: ASPERGILLUS INFECTION
     Dosage: 200 MG, 2X/DAY
     Dates: start: 20120427
  2. VFEND [Suspect]
     Dosage: 500 MG, UNK
     Dates: start: 20120430

REACTIONS (4)
  - Death [Fatal]
  - Drug effect incomplete [Unknown]
  - Osteomyelitis [Unknown]
  - Nerve root compression [Unknown]
